FAERS Safety Report 17796610 (Version 7)
Quarter: 2025Q4

REPORT INFORMATION
  Report Type: Spontaneous
  Country: EU (occurrence: EU)
  Receive Date: 20200518
  Receipt Date: 20251204
  Transmission Date: 20260117
  Serious: Yes (Death, Life-Threatening, Hospitalization, Other)
  Sender: RANBAXY
  Company Number: EU-EMA-DD-20190719-TANEJA_C-134834

PATIENT
  Age: 61 Year
  Sex: Female
  Weight: 77 kg

DRUGS (10)
  1. MIDAZOLAM [Suspect]
     Active Substance: MIDAZOLAM
     Indication: Product used for unknown indication
     Dosage: UNK
     Route: 065
  2. PREGABALIN [Suspect]
     Active Substance: PREGABALIN
     Indication: Suicide attempt
     Dosage: DESCRIBED 3 TO 4 BOXES OF 56
     Route: 065
  3. ZOPICLONE [Suspect]
     Active Substance: ZOPICLONE
     Indication: Product used for unknown indication
     Dosage: UNK
     Route: 065
  4. IVABRADINE [Suspect]
     Active Substance: IVABRADINE
     Indication: Angina pectoris
     Dosage: UNK
     Route: 065
  5. IVABRADINE [Suspect]
     Active Substance: IVABRADINE
     Indication: Cardiac failure chronic
     Route: 046
  6. ATRACURIUM [Suspect]
     Active Substance: ATRACURIUM
     Indication: Product used for unknown indication
     Dosage: UNK
     Route: 065
  7. ATRACURIUM [Suspect]
     Active Substance: ATRACURIUM
     Indication: Product used for unknown indication
     Route: 046
  8. IVABRADINE [Suspect]
     Active Substance: IVABRADINE
     Indication: Product used for unknown indication
     Dosage: UNK
     Route: 065
  9. ATROPINE [Suspect]
     Active Substance: ATROPINE
     Indication: Product used for unknown indication
     Dosage: UNK
     Route: 065
  10. ATROPINE [Suspect]
     Active Substance: ATROPINE
     Indication: Product used for unknown indication
     Route: 046

REACTIONS (17)
  - Toxicity to various agents [Fatal]
  - Completed suicide [Fatal]
  - Multiple organ dysfunction syndrome [Fatal]
  - Cardiac arrest [Recovered/Resolved]
  - Somnolence [Unknown]
  - Cardiac hypertrophy [Unknown]
  - Intentional overdose [Fatal]
  - Respiratory depression [Fatal]
  - Bradycardia [Fatal]
  - Cardiomyopathy [Fatal]
  - Cardiac failure [Unknown]
  - Bundle branch block left [Unknown]
  - Cardiac hypertrophy [Fatal]
  - Hypotension [Fatal]
  - Heart rate decreased [Unknown]
  - Dyspnoea [Unknown]
  - Fatigue [Unknown]

NARRATIVE: CASE EVENT DATE: 20190101
